FAERS Safety Report 7943491-1 (Version None)
Quarter: 2011Q4

REPORT INFORMATION
  Report Type: 
  Country: None (occurrence: None)
  Receive Date: 20111128
  Receipt Date: 20111121
  Transmission Date: 20120403
  Serious: Yes (Death, Hospitalization, Other)
  Sender: FDA-Public Use
  Company Number: PHHY2011FR43779

PATIENT
  Sex: Male
  Weight: 73 kg

DRUGS (9)
  1. ACETAMINOPHEN AND TRAMADOL HCL [Concomitant]
  2. EUPRESSYL [Concomitant]
     Dosage: 2 DF, DAILY
  3. PANTOPRAZOLE SODIUM [Concomitant]
     Dosage: 1 DF, DAILY
  4. RAMIPRIL [Concomitant]
     Dosage: 1 DF, DAILY
  5. OMEXEL LP [Concomitant]
     Dosage: 1 DF, DAILY
  6. FERROUS SULFATE TAB [Concomitant]
  7. AFINITOR [Suspect]
     Indication: RENAL CANCER METASTATIC
     Dosage: 10 MG/DAY
     Route: 048
     Dates: start: 20100303, end: 20110323
  8. ZOCOR [Concomitant]
     Dosage: 1 DF, UNK
  9. BISOPROLOL FUMARATE [Concomitant]
     Dosage: 5 MG, DAILY

REACTIONS (10)
  - SYSTEMIC INFLAMMATORY RESPONSE SYNDROME [None]
  - CARDIAC FAILURE [None]
  - FLUID RETENTION [None]
  - LUNG INFILTRATION [None]
  - RENAL FAILURE [None]
  - RESPIRATORY DISTRESS [None]
  - RENAL IMPAIRMENT [None]
  - PNEUMOCYSTIS JIROVECI PNEUMONIA [None]
  - PLEURAL DISORDER [None]
  - ASTHENIA [None]
